FAERS Safety Report 17970284 (Version 1)
Quarter: 2020Q3

REPORT INFORMATION
  Report Type: Spontaneous
  Country: FR (occurrence: FR)
  Receive Date: 20200701
  Receipt Date: 20200701
  Transmission Date: 20201103
  Serious: Yes (Hospitalization)
  Sender: FDA-Public Use
  Company Number: FR-SA-2020SA164615

PATIENT

DRUGS (3)
  1. LOVENOX [Suspect]
     Active Substance: ENOXAPARIN SODIUM
     Indication: PROPHYLAXIS
     Dosage: UNK
     Route: 042
     Dates: start: 20200605
  2. TAZOBACTAM [Suspect]
     Active Substance: TAZOBACTAM
     Indication: PNEUMONIA
     Dosage: 500 UG, Q8H
     Route: 042
     Dates: start: 20200605, end: 20200609
  3. PIPERACILLIN. [Suspect]
     Active Substance: PIPERACILLIN SODIUM
     Indication: PNEUMONIA
     Dosage: 4 G, Q8H
     Route: 042
     Dates: start: 20200605, end: 20200609

REACTIONS (1)
  - Rash morbilliform [Not Recovered/Not Resolved]

NARRATIVE: CASE EVENT DATE: 20200605
